FAERS Safety Report 8850657 (Version 2)
Quarter: 2013Q1

REPORT INFORMATION
  Report Type: Report from Study
  Country: GB (occurrence: GB)
  Receive Date: 20121019
  Receipt Date: 20121114
  Transmission Date: 20140127
  Serious: Yes (Hospitalization)
  Sender: FDA-Public Use
  Company Number: GB-ASTRAZENECA-2012SE76059

PATIENT
  Age: 28307 Day
  Sex: Male
  Weight: 78.8 kg

DRUGS (11)
  1. ZD6474 [Suspect]
     Indication: TRANSITIONAL CELL CARCINOMA
     Route: 048
     Dates: start: 20120913, end: 20121009
  2. CARBOPLATIN [Suspect]
     Indication: TRANSITIONAL CELL CARCINOMA
     Dosage: 360 MG 30 MIN IV INFUSION ON DAY 1 OF EACH 21 DAY CYCLE
     Route: 042
     Dates: start: 20120912
  3. GEMCITABINE [Suspect]
     Indication: TRANSITIONAL CELL CARCINOMA
     Dosage: 1938 MG OVER A 30 MIN IV INFUSION ON DAY 1 AND 8 OF EACH 21 DAY CYCLE
     Route: 042
     Dates: start: 20120912
  4. SIMVASTATIN [Concomitant]
     Route: 048
     Dates: start: 1995
  5. DIPYRAMOLE [Concomitant]
     Route: 048
     Dates: start: 1985
  6. ASPIRIN [Concomitant]
     Route: 048
     Dates: start: 1985
  7. BISOPROLOL [Concomitant]
     Route: 048
     Dates: start: 1985
  8. EUMOVATE OINTMENT [Concomitant]
     Route: 050
  9. CAVILON [Concomitant]
     Route: 050
     Dates: start: 20120928
  10. PIRITON [Concomitant]
     Dosage: 4-8 MG
     Route: 048
     Dates: start: 20120926
  11. CO-AMOXICLAV [Concomitant]
     Dosage: 300/125 MG TWO TIMES A DAY
     Route: 048
     Dates: start: 20120926, end: 20121010

REACTIONS (5)
  - Hyperkalaemia [Recovered/Resolved]
  - Escherichia urinary tract infection [Recovered/Resolved]
  - Diarrhoea [Recovered/Resolved with Sequelae]
  - Thrombocytopenia [Recovered/Resolved]
  - Neutropenia [Recovered/Resolved]
